FAERS Safety Report 20353507 (Version 1)
Quarter: 2022Q1

REPORT INFORMATION
  Report Type: Spontaneous
  Country: SA (occurrence: None)
  Receive Date: 20220119
  Receipt Date: 20220119
  Transmission Date: 20220423
  Serious: Yes (Hospitalization, Other)
  Sender: FDA-Public Use
  Company Number: SA-Unichem Pharmaceuticals (USA) Inc-UCM202112-001225

PATIENT
  Age: 3 Year
  Sex: Male
  Weight: 14 kg

DRUGS (1)
  1. TIZANIDINE [Suspect]
     Active Substance: TIZANIDINE
     Indication: Accidental overdose
     Dosage: OVERDOSE WITH FEW TABLETS (4 MG EACH)

REACTIONS (9)
  - Miosis [Recovered/Resolved]
  - Pallor [Recovered/Resolved]
  - Lethargy [Recovered/Resolved]
  - Sinus bradycardia [Recovered/Resolved]
  - Dyspnoea [Recovered/Resolved]
  - Depressed level of consciousness [Recovered/Resolved]
  - Respiratory rate decreased [Recovered/Resolved]
  - Somnolence [Recovered/Resolved]
  - Accidental overdose [Unknown]
